FAERS Safety Report 6095363-8 (Version None)
Quarter: 2009Q1

REPORT INFORMATION
  Report Type: 
  Country: None (occurrence: None)
  Receive Date: 20090227
  Receipt Date: 20080307
  Transmission Date: 20090719
  Serious: No
  Sender: FDA-Public Use
  Company Number: A0715619A

PATIENT
  Age: 21 Year
  Sex: Female

DRUGS (1)
  1. LAMICTAL [Suspect]
     Indication: DRUG USE FOR UNKNOWN INDICATION
     Route: 048

REACTIONS (3)
  - CONFUSIONAL STATE [None]
  - HYPOACUSIS [None]
  - VISION BLURRED [None]
